FAERS Safety Report 6037417-8 (Version None)
Quarter: 2009Q1

REPORT INFORMATION
  Report Type: 
  Country: None (occurrence: None)
  Receive Date: 20090114
  Receipt Date: 20080206
  Transmission Date: 20090719
  Serious: Yes (Other)
  Sender: FDA-Public Use
  Company Number: US-PFIZER INC-2008012675

PATIENT
  Sex: Female
  Weight: 74.83 kg

DRUGS (3)
  1. CHANTIX [Suspect]
     Indication: SMOKING CESSATION THERAPY
     Dosage: UNK
     Dates: start: 20071204, end: 20071201
  2. TOPAMAX [Concomitant]
     Indication: MIGRAINE
     Dosage: 100 MG, 1X/DAY
  3. MORPHINE [Concomitant]

REACTIONS (5)
  - DYSPNOEA [None]
  - IMPAIRED DRIVING ABILITY [None]
  - MIGRAINE [None]
  - WEIGHT INCREASED [None]
  - WHEEZING [None]
